FAERS Safety Report 24888751 (Version 1)
Quarter: 2025Q1

REPORT INFORMATION
  Report Type: Spontaneous
  Country: CA (occurrence: CA)
  Receive Date: 20250127
  Receipt Date: 20250127
  Transmission Date: 20250409
  Serious: Yes (Other)
  Sender: CSL BEHRING
  Company Number: CA-BEH-2025192509

PATIENT
  Age: 24 Year
  Sex: Male

DRUGS (48)
  1. FIBRINOGEN HUMAN [Suspect]
     Active Substance: FIBRINOGEN HUMAN
     Indication: Product used for unknown indication
     Route: 065
  2. ALOGLIPTIN BENZOATE [Suspect]
     Active Substance: ALOGLIPTIN BENZOATE
     Indication: Product used for unknown indication
     Route: 065
  3. ALOGLIPTIN BENZOATE\METFORMIN HYDROCHLORIDE [Suspect]
     Active Substance: ALOGLIPTIN BENZOATE\METFORMIN HYDROCHLORIDE
     Indication: Product used for unknown indication
     Route: 065
  4. ALOGLIPTIN BENZOATE\METFORMIN HYDROCHLORIDE [Suspect]
     Active Substance: ALOGLIPTIN BENZOATE\METFORMIN HYDROCHLORIDE
     Route: 065
  5. ROFLUMILAST [Suspect]
     Active Substance: ROFLUMILAST
     Indication: Product used for unknown indication
     Route: 065
  6. DEXILANT [Suspect]
     Active Substance: DEXLANSOPRAZOLE
     Indication: Product used for unknown indication
     Route: 065
  7. EDARBYCLOR [Suspect]
     Active Substance: AZILSARTAN KAMEDOXOMIL\CHLORTHALIDONE
     Indication: Product used for unknown indication
     Route: 065
  8. ENTYVIO [Suspect]
     Active Substance: VEDOLIZUMAB
     Indication: Colitis ulcerative
     Route: 042
  9. ENTYVIO [Suspect]
     Active Substance: VEDOLIZUMAB
     Route: 042
  10. ENTYVIO [Suspect]
     Active Substance: VEDOLIZUMAB
     Route: 042
  11. ALVESCO [Suspect]
     Active Substance: CICLESONIDE
     Indication: Product used for unknown indication
     Route: 055
  12. PANTOPRAZOLE SODIUM [Suspect]
     Active Substance: PANTOPRAZOLE SODIUM
     Indication: Product used for unknown indication
     Route: 065
  13. PIOGLITAZONE HYDROCHLORIDE [Suspect]
     Active Substance: PIOGLITAZONE HYDROCHLORIDE
     Indication: Product used for unknown indication
     Route: 065
  14. PIOGLITAZONE HYDROCHLORIDE [Suspect]
     Active Substance: PIOGLITAZONE HYDROCHLORIDE
     Route: 065
  15. PANTOPRAZOLE [Suspect]
     Active Substance: PANTOPRAZOLE
     Indication: Product used for unknown indication
     Route: 042
  16. PANTOPRAZOLE SODIUM [Suspect]
     Active Substance: PANTOPRAZOLE SODIUM
     Indication: Product used for unknown indication
     Route: 065
  17. PANTOPRAZOLE SODIUM [Suspect]
     Active Substance: PANTOPRAZOLE SODIUM
     Route: 042
  18. PANTOPRAZOLE SODIUM [Suspect]
     Active Substance: PANTOPRAZOLE SODIUM
     Route: 065
  19. NESINA [Suspect]
     Active Substance: ALOGLIPTIN BENZOATE
     Indication: Product used for unknown indication
     Route: 065
  20. OMNARIS [Suspect]
     Active Substance: CICLESONIDE
     Indication: Product used for unknown indication
  21. FIBRINOGEN [Suspect]
     Active Substance: FIBRINOGEN HUMAN
     Indication: Product used for unknown indication
     Route: 065
  22. HUMIRA [Concomitant]
     Active Substance: ADALIMUMAB
     Route: 058
  23. IMURAN [Concomitant]
     Active Substance: AZATHIOPRINE
  24. INFLECTRA [Concomitant]
     Active Substance: INFLIXIMAB-DYYB
  25. INFLIXIMAB [Concomitant]
     Active Substance: INFLIXIMAB
  26. MESALAMINE [Concomitant]
     Active Substance: MESALAMINE
  27. METHOTREXATE [Concomitant]
     Active Substance: METHOTREXATE
  28. ASACOL [Concomitant]
     Active Substance: MESALAMINE
  29. CIMZIA [Concomitant]
     Active Substance: CERTOLIZUMAB PEGOL
  30. CIMZIA [Concomitant]
     Active Substance: CERTOLIZUMAB PEGOL
  31. MESALAMINE [Concomitant]
     Active Substance: MESALAMINE
     Route: 065
  32. GRAVOL [Concomitant]
     Active Substance: DIMENHYDRINATE
  33. PARA-AMINOSALICYLIC ACID [Concomitant]
     Active Substance: AMINOSALICYLIC ACID
     Route: 065
  34. BUDESONIDE [Concomitant]
     Active Substance: BUDESONIDE
  35. PENTASA [Concomitant]
     Active Substance: MESALAMINE
  36. PURINETHOL [Concomitant]
     Active Substance: MERCAPTOPURINE
     Route: 065
  37. INFLIXIMAB [Concomitant]
     Active Substance: INFLIXIMAB
     Route: 042
  38. INFLIXIMAB [Concomitant]
     Active Substance: INFLIXIMAB
     Route: 065
  39. SIMPONI [Concomitant]
     Active Substance: GOLIMUMAB
     Route: 058
  40. SIMPONI [Concomitant]
     Active Substance: GOLIMUMAB
     Route: 065
  41. STELARA [Concomitant]
     Active Substance: USTEKINUMAB
     Route: 058
  42. STELARA [Concomitant]
     Active Substance: USTEKINUMAB
     Route: 065
  43. TYSABRI [Concomitant]
     Active Substance: NATALIZUMAB
     Route: 058
  44. TYSABRI [Concomitant]
     Active Substance: NATALIZUMAB
     Route: 042
  45. TYSABRI [Concomitant]
     Active Substance: NATALIZUMAB
     Route: 065
  46. XELJANZ [Concomitant]
     Active Substance: TOFACITINIB CITRATE
  47. AZATHIOPRINE SODIUM [Concomitant]
     Active Substance: AZATHIOPRINE SODIUM
  48. METHOTREXATE SODIUM [Concomitant]
     Active Substance: METHOTREXATE SODIUM

REACTIONS (2)
  - Therapeutic product effect decreased [Not Recovered/Not Resolved]
  - Inflammatory bowel disease [Not Recovered/Not Resolved]
